FAERS Safety Report 5076244-5 (Version None)
Quarter: 2006Q3

REPORT INFORMATION
  Report Type: 
  Country: None (occurrence: None)
  Receive Date: 20060804
  Receipt Date: 20060726
  Transmission Date: 20061208
  Serious: Yes (Hospitalization, Other)
  Sender: FDA-Public Use
  Company Number: CH-2006-020330

PATIENT
  Sex: 0

DRUGS (2)
  1. BETAFERON (INTERFERON BETA - 1B) INJECTION, 250UG [Suspect]
     Indication: MULTIPLE SCLEROSIS
     Dosage: 8 MIU, SUBCUTANEOUS
     Route: 058
     Dates: start: 19970101
  2. AVONEX [Concomitant]

REACTIONS (5)
  - ERYTHEMA [None]
  - INFLAMMATION [None]
  - LIPOATROPHY [None]
  - NECROSIS [None]
  - PAIN [None]
